FAERS Safety Report 14119416 (Version 8)
Quarter: 2018Q2

REPORT INFORMATION
  Report Type: Spontaneous
  Country: US (occurrence: US)
  Receive Date: 20171024
  Receipt Date: 20180502
  Transmission Date: 20180711
  Serious: No
  Sender: FDA-Public Use
  Company Number: US-PFIZER INC-2017457039

PATIENT
  Age: 64 Year
  Sex: Female
  Weight: 98 kg

DRUGS (7)
  1. IBRANCE [Suspect]
     Active Substance: PALBOCICLIB
     Dosage: 125 MG, CYCLIC [D1-21 Q28 DAYS]
     Route: 048
     Dates: start: 20171006
  2. IBRANCE [Suspect]
     Active Substance: PALBOCICLIB
     Indication: BREAST CANCER METASTATIC
     Dosage: 125 MG, CYCLIC (D 1-21 Q28 DAYS)
     Route: 048
     Dates: start: 20171006
  3. IBRANCE [Suspect]
     Active Substance: PALBOCICLIB
     Dosage: 125 MG, CYCLIC (21 DAY ON AND 7 DAYS OFF)
     Route: 048
     Dates: start: 20171005
  4. IBRANCE [Suspect]
     Active Substance: PALBOCICLIB
     Dosage: 125 MG, CYCLIC [D1-21 Q28 DAYS]
     Route: 048
     Dates: start: 20171006
  5. IBRANCE [Suspect]
     Active Substance: PALBOCICLIB
     Dosage: 125 MG, CYCLIC [DAY 1-21 Q 28 DAYS]
     Route: 048
     Dates: start: 20171006
  6. IBRANCE [Suspect]
     Active Substance: PALBOCICLIB
     Dosage: 125 MG, CYCLIC (DAYS 1-21 Q28 DAYS)
     Route: 048
     Dates: start: 20171006
  7. LETROZOLE. [Suspect]
     Active Substance: LETROZOLE
     Dosage: UNK

REACTIONS (20)
  - Nausea [Not Recovered/Not Resolved]
  - Back pain [Unknown]
  - Pyrexia [Unknown]
  - Headache [Unknown]
  - Nail disorder [Unknown]
  - Asthenia [Unknown]
  - Lymphocyte count increased [Unknown]
  - Pain [Unknown]
  - Insomnia [Not Recovered/Not Resolved]
  - Diarrhoea [Unknown]
  - Vomiting [Unknown]
  - Feeling abnormal [Unknown]
  - Malaise [Unknown]
  - White blood cell count decreased [Unknown]
  - Influenza [Unknown]
  - Arthralgia [Unknown]
  - Toothache [Unknown]
  - Bone pain [Unknown]
  - Fatigue [Unknown]
  - Constipation [Unknown]

NARRATIVE: CASE EVENT DATE: 2017
